FAERS Safety Report 7444394-1 (Version None)
Quarter: 2011Q2

REPORT INFORMATION
  Report Type: 
  Country: None (occurrence: None)
  Receive Date: 20110429
  Receipt Date: 20110415
  Transmission Date: 20111010
  Serious: Yes (Hospitalization, Other)
  Sender: FDA-Public Use
  Company Number: US-BAYER-201020190NA

PATIENT
  Age: 22 Year
  Sex: Female
  Weight: 95.238 kg

DRUGS (10)
  1. TRAMADOL [Concomitant]
     Dosage: 50 MG, UNK
     Route: 048
  2. MOTRIN [Concomitant]
  3. ZOLOFT [Concomitant]
  4. VISTARIL [Concomitant]
  5. YAZ [Suspect]
     Indication: CONTRACEPTION
     Dosage: AS USED DOSE: UNK
     Route: 048
     Dates: start: 20090301, end: 20090917
  6. YASMIN [Suspect]
     Indication: CONTRACEPTION
     Dosage: AS USED DOSE: UNK
     Route: 048
     Dates: start: 20090301, end: 20090917
  7. LEVOTHYROXINE SODIUM [Concomitant]
     Indication: HYPOTHYROIDISM
     Dosage: 150 UNK, UNK
     Route: 048
     Dates: start: 20070801
  8. SULFAMETHOXAZOLE AND TRIMETHOPRIM DOUBLE STRENGTH [Concomitant]
     Route: 048
  9. HYDROCODONE BITARTRATE AND ACETAMINOPHEN [Concomitant]
     Indication: PAIN
     Route: 048
  10. PRENATAL PLUS IRON [Concomitant]
     Route: 048

REACTIONS (1)
  - DEEP VEIN THROMBOSIS [None]
